FAERS Safety Report 15451314 (Version 1)
Quarter: 2018Q3

REPORT INFORMATION
  Report Type: Spontaneous
  Country: US (occurrence: US)
  Receive Date: 20180927
  Receipt Date: 20180927
  Transmission Date: 20181010
  Serious: Yes (Other)
  Sender: FDA-Public Use
  Company Number: None

PATIENT
  Age: 43 Year
  Sex: Female
  Weight: 73.35 kg

DRUGS (2)
  1. CYMBALTA [Suspect]
     Active Substance: DULOXETINE HYDROCHLORIDE
     Indication: FIBROMYALGIA
     Dosage: ?          QUANTITY:1 DF DOSAGE FORM;?
     Route: 048
     Dates: start: 20150415, end: 20150915
  2. LEVOXYL [Concomitant]
     Active Substance: LEVOTHYROXINE SODIUM

REACTIONS (9)
  - Hallucination [None]
  - Hypoaesthesia [None]
  - Paralysis [None]
  - Seizure [None]
  - Visual impairment [None]
  - Musculoskeletal disorder [None]
  - Hypoaesthesia oral [None]
  - Tinnitus [None]
  - Middle insomnia [None]

NARRATIVE: CASE EVENT DATE: 20180715
